FAERS Safety Report 6063794-8 (Version None)
Quarter: 2009Q1

REPORT INFORMATION
  Report Type: 
  Country: None (occurrence: None)
  Receive Date: 20090204
  Receipt Date: 20090126
  Transmission Date: 20090719
  Serious: Yes (Other)
  Sender: FDA-Public Use
  Company Number: US-JNJFOC-20090106805

PATIENT
  Sex: Female
  Weight: 52.16 kg

DRUGS (10)
  1. DURAGESIC-100 [Suspect]
     Dosage: 100 UG/HR+50 UG/HR
     Route: 062
  2. DURAGESIC-100 [Suspect]
     Indication: OSTEOARTHRITIS
     Route: 062
  3. FENTANYL TRANSDERMAL SYSTEM [Suspect]
     Indication: OSTEOARTHRITIS
     Dosage: 100 UG/HR+50 UG/HR
     Route: 062
  4. SYNTHROID [Concomitant]
     Indication: THYROID DISORDER
     Route: 048
  5. MAXZIDE [Concomitant]
     Indication: DIURETIC THERAPY
     Dosage: 75/50 MG TABLET
     Route: 048
  6. EVISTA [Concomitant]
     Indication: BONE DISORDER
     Route: 048
  7. SOMA [Concomitant]
     Indication: PAIN
     Route: 048
  8. ACTONEL [Concomitant]
     Indication: BONE DISORDER
     Route: 048
  9. NORCO [Concomitant]
     Indication: PAIN
     Dosage: DOSAGE 10/325MG
     Route: 048
  10. VALIUM [Concomitant]
     Indication: ANXIETY
     Route: 048

REACTIONS (4)
  - INCORRECT DRUG ADMINISTRATION DURATION [None]
  - MALAISE [None]
  - VOMITING [None]
  - WEIGHT DECREASED [None]
